APPROVED DRUG PRODUCT: HYDROCORTISONE IN ABSORBASE
Active Ingredient: HYDROCORTISONE
Strength: 1%
Dosage Form/Route: OINTMENT;TOPICAL
Application: A088138 | Product #001 | TE Code: AT
Applicant: CMP PHARMA INC
Approved: Sep 6, 1985 | RLD: No | RS: No | Type: RX